FAERS Safety Report 4649258-4 (Version None)
Quarter: 2005Q2

REPORT INFORMATION
  Report Type: 
  Country: None (occurrence: None)
  Receive Date: 20050429
  Receipt Date: 20050419
  Transmission Date: 20051028
  Serious: Yes (Hospitalization)
  Sender: FDA-Public Use
  Company Number: NO-MERCK-0504NOR00030

PATIENT
  Age: 49 Year
  Sex: Male

DRUGS (4)
  1. ZOCOR [Suspect]
     Indication: MYOCARDIAL INFARCTION
     Route: 048
     Dates: start: 19990114, end: 20030912
  2. ZOCOR [Suspect]
     Indication: HYPERCHOLESTEROLAEMIA
     Route: 048
     Dates: start: 19990114, end: 20030912
  3. ASPIRIN AND MAGNESIUM OXIDE [Concomitant]
     Indication: ANGINA PECTORIS
     Route: 048
     Dates: start: 19990101
  4. ASPIRIN AND MAGNESIUM OXIDE [Concomitant]
     Indication: MYOCARDIAL INFARCTION
     Route: 048
     Dates: start: 19990101

REACTIONS (3)
  - CARDIAC FAILURE [None]
  - ERYSIPELAS [None]
  - RHABDOMYOLYSIS [None]
